FAERS Safety Report 4511040-6 (Version None)
Quarter: 2004Q4

REPORT INFORMATION
  Report Type: 
  Country: None (occurrence: None)
  Receive Date: 20041018
  Receipt Date: 20040923
  Transmission Date: 20050328
  Serious: No
  Sender: FDA-Public Use
  Company Number: 209243

PATIENT
  Age: 53 Year
  Sex: Female

DRUGS (14)
  1. XOLAIR [Suspect]
     Indication: ASTHMA
     Dosage: 150 MG, Q4W, SUBCUTANEOUS
     Route: 058
     Dates: start: 20040714
  2. PULMICORT [Concomitant]
  3. HDYROCODONE (HYDROCODONE BITARTRATE) [Concomitant]
  4. NITROGLYCERIN [Concomitant]
  5. LEVOXYL [Concomitant]
  6. VIOXX [Concomitant]
  7. CELEXA [Concomitant]
  8. DIOVAN HCT [Concomitant]
  9. NORVASC [Concomitant]
  10. NEURONTIN [Concomitant]
  11. NEXIUM [Concomitant]
  12. ALBUTEROL (ALBUTEROL, ALBUTEROL SULFATE) [Concomitant]
  13. FLOVENT [Concomitant]
  14. IPRATROPIUM BROMIDE [Concomitant]

REACTIONS (1)
  - DYSPNOEA [None]
